FAERS Safety Report 7884978-X (Version None)
Quarter: 2011Q4

REPORT INFORMATION
  Report Type: 
  Country: None (occurrence: None)
  Receive Date: 20111102
  Receipt Date: 20111019
  Transmission Date: 20120403
  Serious: No
  Sender: FDA-Public Use
  Company Number: US-JNJFOC-20111009596

PATIENT
  Sex: Female
  Weight: 50.8 kg

DRUGS (1)
  1. FENTANYL [Suspect]
     Indication: PAIN
     Route: 062
     Dates: start: 20111017, end: 20111018

REACTIONS (3)
  - INCORRECT DRUG ADMINISTRATION DURATION [None]
  - APPLICATION SITE WARMTH [None]
  - INAPPROPRIATE SCHEDULE OF DRUG ADMINISTRATION [None]
